FAERS Safety Report 9645318 (Version 1)
Quarter: 2013Q4

REPORT INFORMATION
  Report Type: Spontaneous
  Country: US (occurrence: None)
  Receive Date: 20131023
  Receipt Date: 20131023
  Transmission Date: 20140711
  Serious: Yes (Other)
  Sender: FDA-Public Use
  Company Number: None

PATIENT
  Age: 49 Year
  Sex: Female
  Weight: 93.9 kg

DRUGS (7)
  1. TOBRADEX [Suspect]
     Indication: EYE PRURITUS
     Dosage: D-39.-0.05 2 GTTS 2 DROPS TID THREE TIMES A DAY EYE DROPS
     Dates: start: 20131017, end: 20131022
  2. TOBERDEX [Concomitant]
  3. SARAPIN [Concomitant]
  4. IBUPROFEN [Concomitant]
  5. TYL [Concomitant]
  6. VITAMIN B [Concomitant]
  7. D WITH CALCIUM + MAGNESIUM [Concomitant]

REACTIONS (1)
  - Drug hypersensitivity [None]
